FAERS Safety Report 5008403-1 (Version None)
Quarter: 2006Q2

REPORT INFORMATION
  Report Type: 
  Country: None (occurrence: None)
  Receive Date: 20060523
  Receipt Date: 20041119
  Transmission Date: 20061013
  Serious: Yes (Hospitalization, Other)
  Sender: FDA-Public Use
  Company Number: PHHO2004US16582

PATIENT
  Age: 86 Year
  Sex: Female
  Weight: 130 kg

DRUGS (3)
  1. VITAMIN D [Concomitant]
     Indication: OSTEOPOROTIC FRACTURE
     Dosage: UNK, UNK
     Route: 048
  2. CALCIUM CARBONATE [Concomitant]
     Indication: OSTEOPOROTIC FRACTURE
     Route: 048
  3. ZOLEDRONIC ACID VS PLACEBO [Suspect]
     Indication: OSTEOPOROTIC FRACTURE
     Dosage: DOUBLE-BLIND
     Route: 042
     Dates: start: 20031118

REACTIONS (14)
  - ATRIAL FIBRILLATION [None]
  - BRONCHITIS [None]
  - CARDIAC FAILURE CONGESTIVE [None]
  - CARDIOMEGALY [None]
  - CHRONIC OBSTRUCTIVE PULMONARY DISEASE [None]
  - DIVERTICULUM INTESTINAL [None]
  - ISCHAEMIA [None]
  - MITRAL VALVE CALCIFICATION [None]
  - MITRAL VALVE INCOMPETENCE [None]
  - PLEURAL EFFUSION [None]
  - RECTAL HAEMORRHAGE [None]
  - RECTAL PROLAPSE [None]
  - ROTATOR CUFF SYNDROME [None]
  - SURGERY [None]
